FAERS Safety Report 6426372-4 (Version None)
Quarter: 2009Q4

REPORT INFORMATION
  Report Type: 
  Country: None (occurrence: None)
  Receive Date: 20091103
  Receipt Date: 20091103
  Transmission Date: 20100525
  Serious: Yes (Hospitalization)
  Sender: FDA-Public Use
  Company Number: None

PATIENT

DRUGS (2)
  1. VANCOMYCIN [Suspect]
     Indication: ARTHRITIS INFECTIVE
     Dosage: 1.5 GM EVERY DAY IV
     Route: 042
     Dates: start: 20090110, end: 20090129
  2. VANCOMYCIN [Suspect]
     Indication: ENTEROCOCCAL INFECTION
     Dosage: 1.5 GM EVERY DAY IV
     Route: 042
     Dates: start: 20090110, end: 20090129

REACTIONS (1)
  - AGRANULOCYTOSIS [None]
